FAERS Safety Report 8953017 (Version 1)
Quarter: 2012Q4

REPORT INFORMATION
  Report Type: 
  Country: US (occurrence: US)
  Receive Date: 20121205
  Receipt Date: 20121205
  Transmission Date: 20130627
  Serious: Yes (Other)
  Sender: FDA-Public Use
  Company Number: PHEH2012US023677

PATIENT
  Sex: Male

DRUGS (7)
  1. TEKTURNA [Suspect]
     Indication: BLOOD PRESSURE ABNORMAL
  2. LIPITOR [Concomitant]
     Dosage: 10 mg, UNK
  3. VITAMIN D [Concomitant]
     Dosage: 2000 U, UNK
  4. FUROSEMIDE [Concomitant]
     Dosage: 80 mg, UNK
  5. CARVEDILOL [Concomitant]
     Dosage: 6.5 mg, UNK
  6. NEXIUM [Concomitant]
  7. HUMALOG [Concomitant]

REACTIONS (2)
  - Renal mass [Unknown]
  - Renal failure [Unknown]
